FAERS Safety Report 6834260-4 (Version None)
Quarter: 2010Q3

REPORT INFORMATION
  Report Type: 
  Country: None (occurrence: None)
  Receive Date: 20100712
  Receipt Date: 20070411
  Transmission Date: 20110219
  Serious: No
  Sender: FDA-Public Use
  Company Number: US-PFIZER INC-2007030328

PATIENT
  Age: 50 Year
  Sex: Female
  Weight: 63.96 kg

DRUGS (2)
  1. CHANTIX [Suspect]
     Indication: SMOKING CESSATION THERAPY
     Route: 048
     Dates: start: 20070410
  2. VENTOLIN [Concomitant]
     Indication: ASTHMA

REACTIONS (1)
  - PLEURITIC PAIN [None]
